FAERS Safety Report 9344535 (Version 1)
Quarter: 2013Q2

REPORT INFORMATION
  Report Type: Spontaneous
  Country: US (occurrence: US)
  Receive Date: 20130612
  Receipt Date: 20130612
  Transmission Date: 20140414
  Serious: Yes (Hospitalization)
  Sender: FDA-Public Use
  Company Number: US-ELI_LILLY_AND_COMPANY-US201306001321

PATIENT
  Age: 70 Year
  Sex: Female

DRUGS (2)
  1. FORTEO [Suspect]
  2. ENBREL [Concomitant]
     Dosage: UNK

REACTIONS (5)
  - Chest pain [Unknown]
  - Asthenia [Unknown]
  - Erythema [Unknown]
  - Dry mouth [Unknown]
  - Tachycardia [Unknown]
